FAERS Safety Report 25147618 (Version 1)
Quarter: 2025Q2

REPORT INFORMATION
  Report Type: Spontaneous
  Country: US (occurrence: US)
  Receive Date: 20250402
  Receipt Date: 20250402
  Transmission Date: 20250716
  Serious: Yes (Other)
  Sender: BAUSCH AND LOMB
  Company Number: US-BAUSCHBL-2025BNL005379

PATIENT
  Age: 51 Year
  Sex: Female

DRUGS (4)
  1. ZIRGAN [Suspect]
     Active Substance: GANCICLOVIR
     Indication: Herpes virus infection
     Route: 047
     Dates: start: 20250324
  2. LISINOPRIL [Concomitant]
     Active Substance: LISINOPRIL
     Indication: Product used for unknown indication
     Route: 065
  3. AMBIEN [Concomitant]
     Active Substance: ZOLPIDEM TARTRATE
     Indication: Product used for unknown indication
     Route: 065
  4. ELIQUIS [Concomitant]
     Active Substance: APIXABAN
     Indication: Product used for unknown indication
     Route: 065

REACTIONS (5)
  - Condition aggravated [Unknown]
  - Erythema [Unknown]
  - Flushing [Unknown]
  - Eyelid margin crusting [Unknown]
  - Eye discharge [Unknown]

NARRATIVE: CASE EVENT DATE: 20250301
